FAERS Safety Report 8908000 (Version 2)
Quarter: 2013Q1

REPORT INFORMATION
  Report Type: Spontaneous
  Country: US (occurrence: US)
  Receive Date: 20121113
  Receipt Date: 20130206
  Transmission Date: 20140127
  Serious: No
  Sender: FDA-Public Use
  Company Number: US-009507513-1210USA013042

PATIENT
  Age: 54 Year
  Sex: Male
  Weight: 80 kg

DRUGS (1)
  1. VICTRELIS [Suspect]
     Dosage: 200 MG, Q6H
     Route: 048
     Dates: start: 20120710, end: 20121224

REACTIONS (1)
  - Nocturia [Recovered/Resolved]
